FAERS Safety Report 22115377 (Version 1)
Quarter: 2023Q1

REPORT INFORMATION
  Report Type: Spontaneous
  Country: US (occurrence: None)
  Receive Date: 20230318
  Receipt Date: 20230318
  Transmission Date: 20230417
  Serious: Yes (Life-Threatening)
  Sender: FDA-Public Use
  Company Number: None

PATIENT
  Age: 60 Year
  Sex: Female
  Weight: 220.5 kg

DRUGS (4)
  1. NOVOLIN 70/30 [Suspect]
     Active Substance: INSULIN HUMAN
     Indication: Type 2 diabetes mellitus
     Dosage: OTHER QUANTITY : 1 INJECTION(S);?
     Route: 008
     Dates: start: 20110307, end: 20230316
  2. GABAPENTIN [Concomitant]
     Active Substance: GABAPENTIN
  3. PROZA [Concomitant]
  4. NOVOLIN NOS [Concomitant]
     Active Substance: INSULIN HUMAN

REACTIONS (5)
  - Product complaint [None]
  - General physical health deterioration [None]
  - Gait inability [None]
  - Depressed mood [None]
  - Drug ineffective [None]

NARRATIVE: CASE EVENT DATE: 20230318
